FAERS Safety Report 4535868-1 (Version None)
Quarter: 2004Q4

REPORT INFORMATION
  Report Type: 
  Country: None (occurrence: None)
  Receive Date: 20041223
  Receipt Date: 20041213
  Transmission Date: 20050328
  Serious: Yes (Other)
  Sender: FDA-Public Use
  Company Number: PHHO2004JP17932

PATIENT
  Age: 55 Year
  Sex: Male
  Weight: 65 kg

DRUGS (10)
  1. SIMULECT [Suspect]
     Indication: RENAL TRANSPLANT
     Dosage: 20 MG, ONCE/SINGLE
     Dates: start: 20040130, end: 20040130
  2. SIMULECT [Suspect]
     Dosage: 20 MG, ONCE/SINGLE
     Route: 042
     Dates: start: 20040126, end: 20040126
  3. PROGRAF [Suspect]
     Indication: RENAL TRANSPLANT
     Dosage: 6 MG DAILY
     Route: 048
     Dates: start: 20040126
  4. CELLCEPT [Suspect]
     Indication: RENAL TRANSPLANT
     Dosage: 2 G DAILY
     Route: 048
     Dates: start: 20040126, end: 20040211
  5. PREDONINE [Concomitant]
     Indication: RENAL TRANSPLANT
     Dosage: 2 G/DAY
     Dates: start: 20040126, end: 20040211
  6. BREDININ [Concomitant]
     Indication: RENAL TRANSPLANT
  7. FAMOTIDINE [Concomitant]
  8. ZYLORIC [Concomitant]
  9. AMLODIPINE [Concomitant]
  10. PARIET [Concomitant]

REACTIONS (4)
  - ALANINE AMINOTRANSFERASE INCREASED [None]
  - ASPARTATE AMINOTRANSFERASE INCREASED [None]
  - CYTOMEGALOVIRUS ANTIGEN POSITIVE [None]
  - HEPATIC FUNCTION ABNORMAL [None]
